FAERS Safety Report 7987149-1 (Version None)
Quarter: 2011Q4

REPORT INFORMATION
  Report Type: 
  Country: None (occurrence: None)
  Receive Date: 20111216
  Receipt Date: 20110323
  Transmission Date: 20120403
  Serious: Yes (Other)
  Sender: FDA-Public Use
  Company Number: US-BRISTOL-MYERS SQUIBB COMPANY-15632052

PATIENT
  Sex: Male

DRUGS (3)
  1. LAMICTAL [Concomitant]
  2. WELLBUTRIN [Suspect]
  3. ABILIFY [Suspect]
     Indication: BIPOLAR DISORDER

REACTIONS (2)
  - DEPRESSION [None]
  - DYSTONIA [None]
